FAERS Safety Report 10663097 (Version 3)
Quarter: 2015Q1

REPORT INFORMATION
  Report Type: Spontaneous
  Country: US (occurrence: US)
  Receive Date: 20141218
  Receipt Date: 20150318
  Transmission Date: 20150720
  Serious: Yes (Death, Life-Threatening)
  Sender: FDA-Public Use
  Company Number: US-ASTRAZENECA-2014SE95331

PATIENT
  Sex: Female

DRUGS (3)
  1. SYNAGIS [Suspect]
     Active Substance: PALIVIZUMAB
     Indication: HYPOXIA
     Dosage: 100 MG/ML, 15 MG/KG MONTHLY
     Route: 030
     Dates: start: 20141103, end: 20141206
  2. LEVETIRACETAM. [Concomitant]
     Active Substance: LEVETIRACETAM
     Route: 050
     Dates: start: 20140815
  3. PHENOBARBITON [Concomitant]
     Route: 050
     Dates: start: 20140928

REACTIONS (1)
  - Respiratory arrest [Fatal]
